FAERS Safety Report 24758706 (Version 3)
Quarter: 2025Q1

REPORT INFORMATION
  Report Type: Spontaneous
  Country: US (occurrence: US)
  Receive Date: 20241220
  Receipt Date: 20250206
  Transmission Date: 20250409
  Serious: Yes (Other)
  Sender: ITALFARMACO SPA
  Company Number: US-ITALFARMACO SPA-2167487

PATIENT
  Age: 20 Year
  Sex: Male
  Weight: 72.08 kg

DRUGS (8)
  1. DUVYZAT [Suspect]
     Active Substance: GIVINOSTAT
     Indication: Duchenne muscular dystrophy
     Dates: start: 20241025, end: 20241121
  2. PREDNISONE [Concomitant]
     Active Substance: PREDNISONE
  3. LISINOPRIL [Concomitant]
     Active Substance: LISINOPRIL
  4. SPIRONOLACTONE [Concomitant]
     Active Substance: SPIRONOLACTONE
  5. VITAMINS [Concomitant]
     Active Substance: VITAMINS
  6. COENZYME Q10 [Concomitant]
     Active Substance: DIETARY SUPPLEMENT\UBIDECARENONE
  7. FAMOTIDINE [Concomitant]
     Active Substance: FAMOTIDINE
  8. VITAMIN D [Concomitant]
     Active Substance: VITAMIN D NOS

REACTIONS (7)
  - Thrombocytopenia [Recovered/Resolved]
  - Illness [Recovering/Resolving]
  - Cough [Recovering/Resolving]
  - Nausea [Recovering/Resolving]
  - Diarrhoea [Recovering/Resolving]
  - Blood triglycerides increased [Recovering/Resolving]
  - Peripheral swelling [Unknown]

NARRATIVE: CASE EVENT DATE: 20241118
